FAERS Safety Report 17726391 (Version 1)
Quarter: 2020Q2

REPORT INFORMATION
  Report Type: Spontaneous
  Country: FR (occurrence: FR)
  Receive Date: 20200430
  Receipt Date: 20200430
  Transmission Date: 20200714
  Serious: Yes (Life-Threatening)
  Sender: FDA-Public Use
  Company Number: FR-ROCHE-2589904

PATIENT
  Age: 34 Year
  Sex: Female

DRUGS (6)
  1. POLARAMINE [Suspect]
     Active Substance: DEXCHLORPHENIRAMINE MALEATE
     Indication: PREMEDICATION
     Dosage: MOST RECENT DOSE:30/JAN/2020
     Route: 042
     Dates: start: 20200117
  2. BACLOFENE [Concomitant]
     Active Substance: BACLOFEN
  3. FAMPYRA [Concomitant]
     Active Substance: DALFAMPRIDINE
  4. METHYLPREDNISOLONE. [Suspect]
     Active Substance: METHYLPREDNISOLONE
     Indication: PREMEDICATION
     Dosage: MOST RECENT DOSE:30/JAN/2020
     Route: 042
     Dates: start: 20200117
  5. OCREVUS [Suspect]
     Active Substance: OCRELIZUMAB
     Indication: RELAPSING-REMITTING MULTIPLE SCLEROSIS
     Dosage: MOST RECENT DOSE:30/JAN/2020
     Route: 042
     Dates: start: 20200117
  6. PARACETAMOL [Suspect]
     Active Substance: ACETAMINOPHEN
     Indication: PREMEDICATION
     Dosage: MOST RECENT DOSE:30/JAN/2020
     Route: 042
     Dates: start: 20200117

REACTIONS (1)
  - Thrombophlebitis [Recovering/Resolving]

NARRATIVE: CASE EVENT DATE: 20200214
